FAERS Safety Report 23854416 (Version 1)
Quarter: 2024Q2

REPORT INFORMATION
  Report Type: Report from Study
  Country: GB (occurrence: GB)
  Receive Date: 20240514
  Receipt Date: 20240514
  Transmission Date: 20240717
  Serious: Yes (Hospitalization, Other)
  Sender: FDA-Public Use
  Company Number: GB-SA-SAC20230403000026

PATIENT
  Age: 75 Year
  Sex: Male
  Weight: 85 kg

DRUGS (149)
  1. DEXAMETHASONE [Suspect]
     Active Substance: DEXAMETHASONE
     Indication: Plasma cell myeloma refractory
     Dosage: 10 MG, QW, DURATION: 35 DAYS
     Route: 065
     Dates: start: 20221012, end: 20221115
  2. DEXAMETHASONE [Suspect]
     Active Substance: DEXAMETHASONE
     Indication: Plasma cell myeloma refractory
     Dosage: 20 MG, QD, DURATION: 1 DAY
     Route: 065
     Dates: start: 20220116, end: 20220116
  3. DEXAMETHASONE [Suspect]
     Active Substance: DEXAMETHASONE
     Indication: Plasma cell myeloma refractory
     Dosage: 10 MG, TO TAKE ON DAY 22, DURATION: 1 DAY
     Route: 065
     Dates: start: 20230103, end: 20230103
  4. DEXAMETHASONE [Suspect]
     Active Substance: DEXAMETHASONE
     Indication: Plasma cell myeloma refractory
     Dosage: 10 MG, QD, DURATION: 1 DAY
     Route: 065
     Dates: start: 20221122, end: 20221122
  5. DEXAMETHASONE [Suspect]
     Active Substance: DEXAMETHASONE
     Indication: Plasma cell myeloma refractory
     Dosage: 10 MG, QD, DURATION: 1 DAY
     Route: 065
     Dates: start: 20221220, end: 20221220
  6. DEXAMETHASONE [Suspect]
     Active Substance: DEXAMETHASONE
     Indication: Plasma cell myeloma refractory
     Dosage: 10 MG, QW, DURATION: 29 DAYS
     Route: 065
     Dates: start: 20230524, end: 20230621
  7. DEXAMETHASONE [Suspect]
     Active Substance: DEXAMETHASONE
     Indication: Plasma cell myeloma refractory
     Dosage: 10 MG, QD, DURATION: 1 DAY
     Route: 065
     Dates: start: 20230320, end: 20230320
  8. DEXAMETHASONE [Suspect]
     Active Substance: DEXAMETHASONE
     Indication: Plasma cell myeloma refractory
     Dosage: 10 MG, QD, DURATION: 1 DAY
     Route: 065
     Dates: start: 20230313, end: 20230313
  9. DEXAMETHASONE [Suspect]
     Active Substance: DEXAMETHASONE
     Indication: Plasma cell myeloma refractory
     Dosage: 10 MG, QW, DURATION: 29 DAYS
     Route: 065
     Dates: start: 20230206, end: 20230306
  10. DEXAMETHASONE [Suspect]
     Active Substance: DEXAMETHASONE
     Indication: Plasma cell myeloma refractory
     Dosage: 10 MG, QD, DURATION: 43 DAYS
     Route: 065
     Dates: start: 20230412, end: 20230524
  11. DEXAMETHASONE [Suspect]
     Active Substance: DEXAMETHASONE
     Indication: Plasma cell myeloma refractory
     Dosage: TIME INTERVAL: TOTAL: 10 MG, 1X; IN TOTAL, DURATION: 1 DAY
     Route: 065
     Dates: start: 20230614, end: 20230614
  12. DEXAMETHASONE [Suspect]
     Active Substance: DEXAMETHASONE
     Indication: Plasma cell myeloma refractory
     Dosage: 10 MG, QW, DURATION: 29 DAYS
     Route: 065
     Dates: start: 20230109, end: 20230206
  13. DEXAMETHASONE [Suspect]
     Active Substance: DEXAMETHASONE
     Indication: Plasma cell myeloma refractory
     Dosage: 10 MG, QW, DURATION: 1 DAY
     Route: 065
     Dates: start: 20221227, end: 20221227
  14. DEXAMETHASONE [Suspect]
     Active Substance: DEXAMETHASONE
     Indication: Plasma cell myeloma refractory
     Dosage: 10 MG, QW, DURATION: 36 DAYS
     Route: 065
     Dates: start: 20230621, end: 20230726
  15. DEXAMETHASONE [Suspect]
     Active Substance: DEXAMETHASONE
     Indication: Plasma cell myeloma refractory
     Dosage: 10 MG, QD, DURATION: 23 DAYS
     Route: 065
     Dates: start: 20230327, end: 20230418
  16. DEXAMETHASONE [Suspect]
     Active Substance: DEXAMETHASONE
     Indication: Plasma cell myeloma refractory
     Dosage: 10 MG, QD, DURATION: 1 DAY
     Route: 065
     Dates: start: 20230419, end: 20230419
  17. DEXAMETHASONE [Suspect]
     Active Substance: DEXAMETHASONE
     Indication: Plasma cell myeloma refractory
     Dosage: 10 MG, QD, DURATION: 1 DAY
     Route: 065
     Dates: start: 20230116, end: 20230116
  18. DEXAMETHASONE [Suspect]
     Active Substance: DEXAMETHASONE
     Indication: Plasma cell myeloma refractory
     Dosage: 10 MG (FREQUENCY: TAKE DAY 8), DURATION: 1 DAY
     Route: 065
     Dates: start: 20230213, end: 20230213
  19. DEXAMETHASONE [Suspect]
     Active Substance: DEXAMETHASONE
     Indication: Plasma cell myeloma refractory
     Dosage: 10 MG, QW, DURATION: 23 DAYS
     Route: 065
     Dates: start: 20230906, end: 20230928
  20. DEXAMETHASONE [Suspect]
     Active Substance: DEXAMETHASONE
     Indication: Plasma cell myeloma refractory
     Dosage: 10 MG, QW, DURATION: 15 DAYS
     Route: 065
     Dates: start: 20230726, end: 20230809
  21. DEXAMETHASONE [Suspect]
     Active Substance: DEXAMETHASONE
     Indication: Plasma cell myeloma refractory
     Dosage: 10 MG, QW, DURATION: 29 DAYS
     Route: 065
     Dates: start: 20221115, end: 20221213
  22. DEXAMETHASONE [Suspect]
     Active Substance: DEXAMETHASONE
     Indication: Plasma cell myeloma refractory
     Dosage: 2 MG, QW, DURATION: 29 DAYS
     Route: 065
     Dates: start: 20230809, end: 20230906
  23. DEXAMETHASONE [Suspect]
     Active Substance: DEXAMETHASONE
     Indication: Plasma cell myeloma refractory
     Dosage: 10 MG, QW, DURATION: 38 DAYS
     Route: 065
     Dates: start: 20230306, end: 20230412
  24. DEXAMETHASONE [Suspect]
     Active Substance: DEXAMETHASONE
     Indication: Plasma cell myeloma refractory
     Dosage: 10 MG, QW, DURATION: 28 DAYS
     Route: 065
     Dates: start: 20230109, end: 20230205
  25. DEXAMETHASONE [Suspect]
     Active Substance: DEXAMETHASONE
     Indication: Plasma cell myeloma refractory
     Dosage: 10 MG, QW, DURATION: 28 DAYS
     Route: 065
     Dates: start: 20221115, end: 20221212
  26. COTRIMOXAZOLE [Concomitant]
     Active Substance: SULFAMETHOXAZOLE\TRIMETHOPRIM
     Indication: Antifungal prophylaxis
     Dosage: TIME INTERVAL: CYCLICAL: UNK, QCY; CYCLICAL, DURATION: 1 DAY
     Dates: start: 20221213, end: 20221213
  27. COTRIMOXAZOLE [Concomitant]
     Active Substance: SULFAMETHOXAZOLE\TRIMETHOPRIM
     Indication: Antifungal prophylaxis
     Dosage: UNK, DURATION: 1 MONTH
     Dates: start: 20230206, end: 20230305
  28. COTRIMOXAZOLE [Concomitant]
     Active Substance: SULFAMETHOXAZOLE\TRIMETHOPRIM
     Indication: Antifungal prophylaxis
     Dosage: 960 MG, MON/WED/FRI, DURATION: 28 DAYS
     Dates: start: 20221115, end: 20221212
  29. COTRIMOXAZOLE [Concomitant]
     Active Substance: SULFAMETHOXAZOLE\TRIMETHOPRIM
     Indication: Antifungal prophylaxis
     Dosage: 960 MG, MON/TUES/WED, DURATION: 29 DAYS
     Dates: start: 20221012, end: 20221109
  30. COTRIMOXAZOLE [Concomitant]
     Active Substance: SULFAMETHOXAZOLE\TRIMETHOPRIM
     Indication: Antifungal prophylaxis
     Dosage: 960 MG (MON/WED/FRI); DURATION: 29 DAYS
     Dates: start: 20230621, end: 20230719
  31. COTRIMOXAZOLE [Concomitant]
     Active Substance: SULFAMETHOXAZOLE\TRIMETHOPRIM
     Indication: Antifungal prophylaxis
     Dosage: 960 MG, DURATION: 42 DAYS
     Dates: start: 20230412, end: 20230523
  32. COTRIMOXAZOLE [Concomitant]
     Active Substance: SULFAMETHOXAZOLE\TRIMETHOPRIM
     Indication: Antifungal prophylaxis
     Dosage: UNK
     Dates: start: 20230418
  33. COTRIMOXAZOLE [Concomitant]
     Active Substance: SULFAMETHOXAZOLE\TRIMETHOPRIM
     Indication: Antifungal prophylaxis
     Dosage: 960 MG(MON/WED/FRI);
     Dates: start: 20230726
  34. COTRIMOXAZOLE [Concomitant]
     Active Substance: SULFAMETHOXAZOLE\TRIMETHOPRIM
     Indication: Antifungal prophylaxis
     Dosage: UNK
     Dates: start: 2020
  35. COTRIMOXAZOLE [Concomitant]
     Active Substance: SULFAMETHOXAZOLE\TRIMETHOPRIM
     Indication: Antifungal prophylaxis
     Dosage: 960 MG(MON/WED/FRI 28 DAYS);
     Dates: start: 20230524
  36. COTRIMOXAZOLE [Concomitant]
     Active Substance: SULFAMETHOXAZOLE\TRIMETHOPRIM
     Indication: Antifungal prophylaxis
     Dosage: 960 MG, QD, DURATION: 28 DAYS
     Dates: start: 20230306, end: 20230402
  37. COTRIMOXAZOLE [Concomitant]
     Active Substance: SULFAMETHOXAZOLE\TRIMETHOPRIM
     Indication: Antifungal prophylaxis
     Dosage: 960 MG, DURATION: 29 DAYS
     Dates: start: 20230412, end: 20230510
  38. FILGRASTIM [Concomitant]
     Active Substance: FILGRASTIM
     Indication: Plasma cell myeloma refractory
     Dosage: 300 UG, BIW, DURATION: 28 DAYS
     Dates: start: 20221115, end: 20221212
  39. FILGRASTIM [Concomitant]
     Active Substance: FILGRASTIM
     Indication: Plasma cell myeloma refractory
     Dosage: 300 UG, QW, DURATION: 1 MONTH
     Dates: start: 20221010, end: 20221109
  40. FILGRASTIM [Concomitant]
     Active Substance: FILGRASTIM
     Indication: Plasma cell myeloma refractory
     Dosage: 300 UG, BIW, DURATION: 29 DAYS
     Dates: start: 20221213, end: 20230110
  41. FILGRASTIM [Concomitant]
     Active Substance: FILGRASTIM
     Indication: Plasma cell myeloma refractory
     Dosage: 300 MG/M2, BIW, DURATION: 42 DAYS
     Dates: start: 20230412, end: 20230523
  42. FILGRASTIM [Concomitant]
     Active Substance: FILGRASTIM
     Indication: Plasma cell myeloma refractory
     Dosage: 300 MG, BIW, DURATION: 29 DAYS
     Dates: start: 20230621, end: 20230719
  43. FILGRASTIM [Concomitant]
     Active Substance: FILGRASTIM
     Indication: Plasma cell myeloma refractory
     Dosage: 300 MG, BIW
     Dates: start: 20230726
  44. FILGRASTIM [Concomitant]
     Active Substance: FILGRASTIM
     Indication: Plasma cell myeloma refractory
     Dosage: 300 MG, DURATION: 1 MONTH
     Dates: start: 20230206, end: 20230305
  45. FILGRASTIM [Concomitant]
     Active Substance: FILGRASTIM
     Indication: Plasma cell myeloma refractory
     Dosage: 300 MG/M2, BIW, QCY, DURATION: 28 DAYS
     Dates: start: 20230306, end: 20230402
  46. FILGRASTIM [Concomitant]
     Active Substance: FILGRASTIM
     Indication: Plasma cell myeloma refractory
     Dosage: 300 UG, BIW, DURATION: 1 DAY
     Dates: start: 20230109, end: 20230109
  47. FILGRASTIM [Concomitant]
     Active Substance: FILGRASTIM
     Indication: Plasma cell myeloma refractory
     Dosage: 300 MG, BIW
     Dates: start: 20230524
  48. FILGRASTIM [Concomitant]
     Active Substance: FILGRASTIM
     Indication: Plasma cell myeloma refractory
     Dosage: TIME INTERVAL: CYCLICAL: UNK, QCY; CYCLICAL, DURATION: 29 DAYS
     Dates: start: 20221012, end: 20221109
  49. FILGRASTIM [Concomitant]
     Active Substance: FILGRASTIM
     Indication: Plasma cell myeloma refractory
     Dosage: TIME INTERVAL: CYCLICAL: UNK, QCY; CYCLICAL, DURATION: 3 DAYS
     Dates: start: 20221107, end: 20221109
  50. BISOPROLOL [Concomitant]
     Active Substance: BISOPROLOL\BISOPROLOL FUMARATE
     Indication: Cardiac failure
     Dosage: UNK
     Dates: start: 2020
  51. FINASTERIDE [Concomitant]
     Active Substance: FINASTERIDE
     Indication: Benign prostatic hyperplasia
     Dosage: UNK
     Dates: start: 2018
  52. POMALIDOMIDE [Suspect]
     Active Substance: POMALIDOMIDE
     Indication: Plasma cell myeloma refractory
     Dosage: 2 MG, QD
     Route: 065
     Dates: start: 20230712, end: 20230802
  53. POMALIDOMIDE [Suspect]
     Active Substance: POMALIDOMIDE
     Indication: Plasma cell myeloma refractory
     Dosage: 2 MG, BIW, DURATION: 15 DAYS
     Route: 065
     Dates: start: 20230726, end: 20230809
  54. POMALIDOMIDE [Suspect]
     Active Substance: POMALIDOMIDE
     Indication: Plasma cell myeloma refractory
     Dosage: 2 MG, BIW, DURATION: 28 DAYS
     Route: 065
     Dates: start: 20221213, end: 20230109
  55. POMALIDOMIDE [Suspect]
     Active Substance: POMALIDOMIDE
     Indication: Plasma cell myeloma refractory
     Dosage: 3 MG, QD, DURATION: 28 DAYS
     Route: 065
     Dates: start: 20221115, end: 20221212
  56. POMALIDOMIDE [Suspect]
     Active Substance: POMALIDOMIDE
     Indication: Plasma cell myeloma refractory
     Dosage: 2 MG, BIW, DURATION: 21 DAYS
     Route: 065
     Dates: start: 20230906, end: 20230926
  57. POMALIDOMIDE [Suspect]
     Active Substance: POMALIDOMIDE
     Indication: Plasma cell myeloma refractory
     Dosage: 2 MG, BIW, DURATION: 37 DAYS
     Route: 065
     Dates: start: 20230621, end: 20230727
  58. POMALIDOMIDE [Suspect]
     Active Substance: POMALIDOMIDE
     Indication: Plasma cell myeloma refractory
     Dosage: 2 MG, BIW, DURATION: 24 DAYS
     Route: 065
     Dates: start: 20230412, end: 20230505
  59. POMALIDOMIDE [Suspect]
     Active Substance: POMALIDOMIDE
     Indication: Plasma cell myeloma refractory
     Dosage: 2 MG, BIW, DURATION: 29 DAYS
     Route: 065
     Dates: start: 20230109, end: 20230206
  60. POMALIDOMIDE [Suspect]
     Active Substance: POMALIDOMIDE
     Indication: Plasma cell myeloma refractory
     Dosage: 2 MG, BIW, DURATION: 29 DAYS
     Route: 065
     Dates: start: 20230524, end: 20230621
  61. POMALIDOMIDE [Suspect]
     Active Substance: POMALIDOMIDE
     Indication: Plasma cell myeloma refractory
     Dosage: 3 MG, QW, DURATION: 22 DAYS
     Route: 065
     Dates: start: 20221012, end: 20221102
  62. POMALIDOMIDE [Suspect]
     Active Substance: POMALIDOMIDE
     Indication: Plasma cell myeloma refractory
     Dosage: 2 MG, BIW, DURATION: 29 DAYS
     Route: 065
     Dates: start: 20230206, end: 20230306
  63. POMALIDOMIDE [Suspect]
     Active Substance: POMALIDOMIDE
     Indication: Plasma cell myeloma refractory
     Dosage: 2 MG, BIW, DURATION: 29 DAYS
     Route: 065
     Dates: start: 20221115, end: 20221213
  64. POMALIDOMIDE [Suspect]
     Active Substance: POMALIDOMIDE
     Indication: Plasma cell myeloma refractory
     Dosage: 2 MG, BIW, DURATION: 38 DAYS
     Route: 065
     Dates: start: 20230306, end: 20230412
  65. HYDRALAZINE [Concomitant]
     Active Substance: HYDRALAZINE HYDROCHLORIDE
     Indication: Respiratory tract infection viral
     Dosage: UNK
     Dates: start: 2020
  66. LANSOPRAZOLE [Concomitant]
     Active Substance: LANSOPRAZOLE
     Indication: Gastrointestinal disorder prophylaxis
     Dosage: UNK
     Dates: start: 2023
  67. LANSOPRAZOLE [Concomitant]
     Active Substance: LANSOPRAZOLE
     Indication: Gastrointestinal disorder prophylaxis
     Dosage: UNK
     Dates: start: 2020
  68. ONDANSETRON [Concomitant]
     Active Substance: ONDANSETRON
     Indication: Prophylaxis
     Dosage: UNK (EVERY CYCLE)
     Dates: start: 2020
  69. BUMETANIDE [Concomitant]
     Active Substance: BUMETANIDE
     Indication: Cardiac failure
     Dosage: UNK
     Dates: start: 2020
  70. BUMETANIDE [Concomitant]
     Active Substance: BUMETANIDE
     Indication: Cardiac failure
     Dosage: UNK, DURATION: 1 YEAR
     Dates: start: 20221213, end: 20231212
  71. PREGABALIN [Concomitant]
     Active Substance: PREGABALIN
     Indication: Osteoarthritis
     Dosage: UNK
     Dates: start: 2020
  72. PREGABALIN [Concomitant]
     Active Substance: PREGABALIN
     Indication: Osteoarthritis
     Dosage: UNK
     Dates: start: 2018
  73. RIVAROXABAN [Concomitant]
     Active Substance: RIVAROXABAN
     Indication: Plasma cell myeloma refractory
     Dosage: 10 MG, DURATION: 29 DAYS
     Dates: start: 20230109, end: 20230206
  74. RIVAROXABAN [Concomitant]
     Active Substance: RIVAROXABAN
     Indication: Plasma cell myeloma refractory
     Dosage: 10 MG, DURATION: 29 DAYS
     Dates: start: 20230206, end: 20230306
  75. RIVAROXABAN [Concomitant]
     Active Substance: RIVAROXABAN
     Indication: Plasma cell myeloma refractory
     Dosage: 10 MG, QD, DURATION: 29 DAYS
     Dates: start: 20230412, end: 20230510
  76. RIVAROXABAN [Concomitant]
     Active Substance: RIVAROXABAN
     Indication: Plasma cell myeloma refractory
     Dosage: 10 MG, DURATION: 29 DAYS
     Dates: start: 20230524, end: 20230621
  77. RIVAROXABAN [Concomitant]
     Active Substance: RIVAROXABAN
     Indication: Plasma cell myeloma refractory
     Dosage: 10 MG, QD, DURATION: 29 DAYS
     Dates: start: 20230306, end: 20230403
  78. SODIUM BICARBONATE [Concomitant]
     Active Substance: SODIUM BICARBONATE
     Indication: Chronic kidney disease
     Dosage: UNK
     Dates: start: 202304
  79. SODIUM BICARBONATE [Concomitant]
     Active Substance: SODIUM BICARBONATE
     Indication: Chronic kidney disease
     Dosage: UNK
     Dates: start: 2020
  80. ISATUXIMAB [Suspect]
     Active Substance: ISATUXIMAB
     Indication: Plasma cell myeloma refractory
     Dosage: 800 MG, QD, DURATION: 14 DAYS
     Route: 065
     Dates: start: 20230823, end: 20230823
  81. ISATUXIMAB [Suspect]
     Active Substance: ISATUXIMAB
     Indication: Plasma cell myeloma refractory
     Dosage: 800 MG, BIW, DURATION: 29 DAYS
     Route: 065
     Dates: start: 20230809, end: 20230906
  82. ISATUXIMAB [Suspect]
     Active Substance: ISATUXIMAB
     Indication: Plasma cell myeloma refractory
     Dosage: 800 MG, QW, DURATION: 1 DAY
     Route: 065
     Dates: start: 20221026, end: 20221026
  83. ISATUXIMAB [Suspect]
     Active Substance: ISATUXIMAB
     Indication: Plasma cell myeloma refractory
     Dosage: 800 MG, QW, DURATION: 35 DAYS
     Route: 065
     Dates: start: 20221012, end: 20221115
  84. ISATUXIMAB [Suspect]
     Active Substance: ISATUXIMAB
     Indication: Plasma cell myeloma refractory
     Dosage: TIME INTERVAL: TOTAL: 800 MG, 1X; IN TOTAL, DURATION: 1 DAY
     Route: 065
     Dates: start: 20230607, end: 20230607
  85. ISATUXIMAB [Suspect]
     Active Substance: ISATUXIMAB
     Indication: Plasma cell myeloma refractory
     Dosage: 800 MG, BIW, DURATION: 1 DAY
     Route: 065
     Dates: start: 20230320, end: 20230320
  86. ISATUXIMAB [Suspect]
     Active Substance: ISATUXIMAB
     Indication: Plasma cell myeloma refractory
     Dosage: 800 MG, BIW, DURATION: 29 DAYS
     Route: 065
     Dates: start: 20230206, end: 20230306
  87. ISATUXIMAB [Suspect]
     Active Substance: ISATUXIMAB
     Indication: Plasma cell myeloma refractory
     Dosage: 800 MG, BIW, DURATION: 38 DAYS
     Route: 065
     Dates: start: 20230306, end: 20230412
  88. ISATUXIMAB [Suspect]
     Active Substance: ISATUXIMAB
     Indication: Plasma cell myeloma refractory
     Dosage: 800 MG, BIW, DURATION: 24 DAYS
     Route: 065
     Dates: start: 20230412, end: 20230505
  89. ISATUXIMAB [Suspect]
     Active Substance: ISATUXIMAB
     Indication: Plasma cell myeloma refractory
     Dosage: 800 MG, BIW, DURATION: 14 DAYS
     Route: 065
     Dates: start: 20230906, end: 20230928
  90. ISATUXIMAB [Suspect]
     Active Substance: ISATUXIMAB
     Indication: Plasma cell myeloma refractory
     Dosage: TIME INTERVAL: TOTAL: 800 MG, 1X; IN TOTAL, DURATION: 14 DAYS
     Route: 065
     Dates: start: 20230726, end: 20230726
  91. ISATUXIMAB [Suspect]
     Active Substance: ISATUXIMAB
     Indication: Plasma cell myeloma refractory
     Dosage: 800 MG, BIW, DURATION: 29 DAYS
     Route: 065
     Dates: start: 20230109, end: 20230206
  92. ISATUXIMAB [Suspect]
     Active Substance: ISATUXIMAB
     Indication: Plasma cell myeloma refractory
     Dosage: TIME INTERVAL: TOTAL: 800 MG, QD; IN TOTAL, DURATION: 1 DAY
     Route: 065
     Dates: start: 20230524, end: 20230524
  93. ISATUXIMAB [Suspect]
     Active Substance: ISATUXIMAB
     Indication: Plasma cell myeloma refractory
     Dosage: 800 MG, BIW, DURATION: 9 DAYS
     Route: 065
     Dates: start: 20230829, end: 20230906
  94. ISATUXIMAB [Suspect]
     Active Substance: ISATUXIMAB
     Indication: Plasma cell myeloma refractory
     Dosage: 800 MG TWICE PER CYCLE, DURATION: 14 DAYS
     Route: 065
     Dates: start: 20230621, end: 20230705
  95. ISATUXIMAB [Suspect]
     Active Substance: ISATUXIMAB
     Indication: Plasma cell myeloma refractory
     Dosage: 800 MG, BIW, DURATION: 1 DAY
     Route: 065
     Dates: start: 20221227, end: 20221227
  96. ISATUXIMAB [Suspect]
     Active Substance: ISATUXIMAB
     Indication: Plasma cell myeloma refractory
     Dosage: 800 MG, BIW, DURATION: 28 DAYS
     Route: 065
     Dates: start: 20221115, end: 20221212
  97. ISATUXIMAB [Suspect]
     Active Substance: ISATUXIMAB
     Indication: Plasma cell myeloma refractory
     Dosage: 800 MG, QW, DURATION: 1 DAY
     Route: 065
     Dates: start: 20221019, end: 20221019
  98. ISATUXIMAB [Suspect]
     Active Substance: ISATUXIMAB
     Indication: Plasma cell myeloma refractory
     Dosage: 800 MG, BIW, DURATION: 28 DAYS
     Route: 065
     Dates: start: 20221213, end: 20230109
  99. ISATUXIMAB [Suspect]
     Active Substance: ISATUXIMAB
     Indication: Plasma cell myeloma refractory
     Dosage: 800 MG, QW, DURATION: 1 DAY
     Route: 065
     Dates: start: 20221102, end: 20221102
  100. ISATUXIMAB [Suspect]
     Active Substance: ISATUXIMAB
     Indication: Plasma cell myeloma refractory
     Dosage: 800 MG, BIW, DURATION: 29 DAYS
     Route: 065
     Dates: start: 20230524, end: 20230621
  101. ISATUXIMAB [Suspect]
     Active Substance: ISATUXIMAB
     Indication: Plasma cell myeloma refractory
     Dosage: 800 MG, BIW, DURATION: 14 DAYS
     Route: 065
     Dates: start: 20230621, end: 20230726
  102. ISATUXIMAB [Suspect]
     Active Substance: ISATUXIMAB
     Indication: Plasma cell myeloma refractory
     Dosage: 800 MG, BIW, DURATION: 14 DAYS
     Route: 065
     Dates: start: 20230726, end: 20230809
  103. TAMSULOSIN [Concomitant]
     Active Substance: TAMSULOSIN
     Indication: Benign prostatic hyperplasia
     Dosage: UNK
     Dates: start: 2020
  104. FLUCONAZOLE [Concomitant]
     Active Substance: FLUCONAZOLE
     Indication: Infection prophylaxis
     Dosage: UNK
     Dates: start: 2020
  105. MONTELUKAST [Concomitant]
     Active Substance: MONTELUKAST SODIUM
     Dosage: 10 MG, QD, DURATION: 1 DAY
     Dates: start: 20221012, end: 20221012
  106. ACETAMINOPHEN [Concomitant]
     Active Substance: ACETAMINOPHEN
     Indication: Prophylaxis
     Dosage: TIME INTERVAL: TOTAL: 1000 MG, 1X; IN TOTAL, DURATION: 1 DAY
     Dates: start: 20230726, end: 20230726
  107. ACETAMINOPHEN [Concomitant]
     Active Substance: ACETAMINOPHEN
     Indication: Prophylaxis
     Dosage: 1000 MG, QD, DURATION: 1 DAY
     Dates: start: 20230320, end: 20230320
  108. ACETAMINOPHEN [Concomitant]
     Active Substance: ACETAMINOPHEN
     Indication: Prophylaxis
     Dosage: 1000 MG(TWICE PER CYCLE), DURATION: 15 DAYS
     Dates: start: 20230621, end: 20230705
  109. ACETAMINOPHEN [Concomitant]
     Active Substance: ACETAMINOPHEN
     Indication: Prophylaxis
     Dosage: 1000 MG, QD, DURATION: 1 DAY
     Dates: start: 20221115, end: 20221115
  110. ACETAMINOPHEN [Concomitant]
     Active Substance: ACETAMINOPHEN
     Indication: Prophylaxis
     Dosage: TIME INTERVAL: CYCLICAL: UNK UNK, QCY; CYCLICAL, DURATION: 1 DAY
     Dates: start: 20230412, end: 20230412
  111. ACETAMINOPHEN [Concomitant]
     Active Substance: ACETAMINOPHEN
     Indication: Prophylaxis
     Dosage: TIME INTERVAL: TOTAL: 1000 MG, 1X; IN TOTAL, DURATION: 1 DAY
     Dates: start: 20230607, end: 20230607
  112. ACETAMINOPHEN [Concomitant]
     Active Substance: ACETAMINOPHEN
     Indication: Prophylaxis
     Dosage: 1000 MG, QD, DURATION: 1 DAY
     Dates: start: 20221012, end: 20221012
  113. ACETAMINOPHEN [Concomitant]
     Active Substance: ACETAMINOPHEN
     Indication: Prophylaxis
     Dosage: 10 MG, QD, DURATION: 1 DAY
     Dates: start: 20230412, end: 20230412
  114. ACETAMINOPHEN [Concomitant]
     Active Substance: ACETAMINOPHEN
     Indication: Prophylaxis
     Dosage: 1000 MG, QD, DURATION: 1 DAY
     Dates: start: 20221213, end: 20221213
  115. ACETAMINOPHEN [Concomitant]
     Active Substance: ACETAMINOPHEN
     Indication: Prophylaxis
     Dosage: TIME INTERVAL: CYCLICAL: UNK UNK, QCY; CYCLICAL, DURATION: 1 DAY
     Dates: start: 20230123, end: 20230123
  116. ACETAMINOPHEN [Concomitant]
     Active Substance: ACETAMINOPHEN
     Indication: Prophylaxis
     Dosage: TIME INTERVAL: TOTAL: 1000 MG, 1X; IN TOTAL, DURATION: 1 DAY
     Dates: start: 20230524, end: 20230524
  117. ACETAMINOPHEN [Concomitant]
     Active Substance: ACETAMINOPHEN
     Indication: Prophylaxis
     Dosage: TIME INTERVAL: CYCLICAL: UNK UNK, QCY; CYCLICAL, DURATION: 1 DAY
     Dates: start: 20230220, end: 20230220
  118. ACETAMINOPHEN [Concomitant]
     Active Substance: ACETAMINOPHEN
     Indication: Prophylaxis
     Dosage: UNK
     Dates: start: 2020
  119. ACETAMINOPHEN [Concomitant]
     Active Substance: ACETAMINOPHEN
     Indication: Prophylaxis
     Dosage: 1000 MG, QD, DURATION: 1 DAY
     Dates: start: 20230306, end: 20230306
  120. ACETAMINOPHEN [Concomitant]
     Active Substance: ACETAMINOPHEN
     Indication: Prophylaxis
     Dosage: 1000 MG, QD, DURATION: 1 DAY
     Dates: start: 20230109, end: 20230109
  121. ACETAMINOPHEN [Concomitant]
     Active Substance: ACETAMINOPHEN
     Indication: Prophylaxis
     Dosage: 1000 MG, QD, DURATION: 1 DAY
     Dates: start: 20221227, end: 20221227
  122. ACETAMINOPHEN [Concomitant]
     Active Substance: ACETAMINOPHEN
     Indication: Prophylaxis
     Dosage: 1000 MG, QD, DURATION: 1 DAY
     Dates: start: 20230206, end: 20230206
  123. PAMIDRONATE [Concomitant]
     Active Substance: PAMIDRONATE DISODIUM
     Dosage: 30 MG, QD, DURATION: 1 DAY
     Dates: start: 20230503, end: 20230503
  124. ACYCLOVIR [Concomitant]
     Active Substance: ACYCLOVIR
     Indication: Antiviral prophylaxis
     Dosage: UNK
     Dates: start: 2020
  125. CALCIUM CARBONATE\CHOLECALCIFEROL [Concomitant]
     Active Substance: CALCIUM CARBONATE\CHOLECALCIFEROL
     Indication: Bone disorder
     Dosage: UNK
     Dates: start: 2020
  126. ALLOPURINOL [Concomitant]
     Active Substance: ALLOPURINOL
     Indication: Gout
     Dosage: UNK
     Dates: start: 2020
  127. DEXAMETHASONE [Concomitant]
     Active Substance: DEXAMETHASONE
     Indication: Supportive care
     Dosage: TIME INTERVAL: CYCLICAL: UNK UNK, QCY; CYCLICAL, DURATION: 1 DAY
     Dates: start: 20230206, end: 20230206
  128. DEXAMETHASONE [Concomitant]
     Active Substance: DEXAMETHASONE
     Indication: Supportive care
     Dosage: TIME INTERVAL: CYCLICAL: UNK UNK, QCY; CYCLICAL, DURATION: 1 DAY
     Dates: start: 20230412, end: 20230412
  129. DEXAMETHASONE [Concomitant]
     Active Substance: DEXAMETHASONE
     Indication: Supportive care
     Dosage: TIME INTERVAL: CYCLICAL: UNK UNK, QCY; CYCLICAL, DURATION: 1 DAY
     Dates: start: 20230320, end: 20230320
  130. DEXAMETHASONE [Concomitant]
     Active Substance: DEXAMETHASONE
     Indication: Supportive care
     Dosage: TIME INTERVAL: CYCLICAL: UNK UNK, QCY; CYCLICAL, DURATION: 1 DAY
     Dates: start: 20230220, end: 20230220
  131. DEXAMETHASONE [Concomitant]
     Active Substance: DEXAMETHASONE
     Indication: Supportive care
     Dosage: TIME INTERVAL: CYCLICAL: UNK UNK, QCY; CYCLICAL, DURATION: 1 DAY
     Dates: start: 20230306, end: 20230306
  132. CHLORPHENIRAMINE MALEATE [Concomitant]
     Active Substance: CHLORPHENIRAMINE MALEATE
     Dosage: 4 MG, QD, DURATION: 1 DAY
     Dates: start: 20221213, end: 20221213
  133. CHLORPHENIRAMINE MALEATE [Concomitant]
     Active Substance: CHLORPHENIRAMINE MALEATE
     Dosage: 10 MG, QD, DURATION: 1 DAY
     Dates: start: 20221012, end: 20221012
  134. CHLORPHENIRAMINE MALEATE [Concomitant]
     Active Substance: CHLORPHENIRAMINE MALEATE
     Dosage: 4 MG, QD, DURATION: 1 DAY
     Dates: start: 20221227, end: 20221227
  135. CHLORPHENIRAMINE MALEATE [Concomitant]
     Active Substance: CHLORPHENIRAMINE MALEATE
     Dosage: 4 MG, QD, DURATION: 1 DAY
     Dates: start: 20221115, end: 20221115
  136. CHLORPHENIRAMINE MALEATE [Concomitant]
     Active Substance: CHLORPHENIRAMINE MALEATE
     Dosage: TIME INTERVAL: TOTAL: 4 MG, 1X; IN TOTAL, DURATION: 1 DAY
     Dates: start: 20230524, end: 20230524
  137. CHLORPHENIRAMINE MALEATE [Concomitant]
     Active Substance: CHLORPHENIRAMINE MALEATE
     Dosage: TIME INTERVAL: CYCLICAL: UNK UNK, QCY; CYCLICAL, DURATION: 1 DAY
     Dates: start: 20230123, end: 20230123
  138. CHLORPHENIRAMINE MALEATE [Concomitant]
     Active Substance: CHLORPHENIRAMINE MALEATE
     Dosage: TIME INTERVAL: CYCLICAL: UNK UNK, QCY; CYCLICAL, DURATION: 1 DAY
     Dates: start: 20230412, end: 20230412
  139. CHLORPHENIRAMINE MALEATE [Concomitant]
     Active Substance: CHLORPHENIRAMINE MALEATE
     Dosage: 4 MG, QD, DURATION: 1 DAY
     Dates: start: 20230412, end: 20230412
  140. CHLORPHENIRAMINE MALEATE [Concomitant]
     Active Substance: CHLORPHENIRAMINE MALEATE
     Dosage: TIME INTERVAL: TOTAL: 4 MG, 1X; IN TOTAL, DURATION: 1 DAY
     Dates: start: 20230726, end: 20230726
  141. CHLORPHENIRAMINE MALEATE [Concomitant]
     Active Substance: CHLORPHENIRAMINE MALEATE
     Dosage: 4 MG, QD, DURATION: 1 DAY
     Dates: start: 20230206, end: 20230206
  142. CHLORPHENIRAMINE MALEATE [Concomitant]
     Active Substance: CHLORPHENIRAMINE MALEATE
     Dosage: TIME INTERVAL: CYCLICAL: UNK UNK, QCY; CYCLICAL, DURATION: 1 DAY
     Dates: start: 20230220, end: 20230220
  143. CHLORPHENIRAMINE MALEATE [Concomitant]
     Active Substance: CHLORPHENIRAMINE MALEATE
     Dosage: TIME INTERVAL: TOTAL: 4 MG, 1X; IN TOTAL, DURATION: 1 DAY
     Dates: start: 20230607, end: 20230607
  144. CHLORPHENIRAMINE MALEATE [Concomitant]
     Active Substance: CHLORPHENIRAMINE MALEATE
     Dosage: 4 MG, OTHER, DURATION: 1 DAY
     Dates: start: 20230109, end: 20230109
  145. CHLORPHENIRAMINE MALEATE [Concomitant]
     Active Substance: CHLORPHENIRAMINE MALEATE
     Dosage: 4 MG, QD, DURATION: 1 DAY
     Dates: start: 20230306, end: 20230306
  146. CHLORPHENIRAMINE MALEATE [Concomitant]
     Active Substance: CHLORPHENIRAMINE MALEATE
     Dosage: 4 MG, QD, DURATION: 1 DAY
     Dates: start: 20230320, end: 20230320
  147. ISOSORBIDE MONONITRATE [Concomitant]
     Active Substance: ISOSORBIDE MONONITRATE
     Dosage: UNK, DURATION: 1 YEAR
     Dates: start: 20221213, end: 20231212
  148. ISOSORBIDE MONONITRATE [Concomitant]
     Active Substance: ISOSORBIDE MONONITRATE
     Dosage: UNK
     Dates: start: 2020
  149. CALCIUM\VITAMIN D [Concomitant]
     Active Substance: CALCIUM\VITAMIN D
     Indication: Supportive care
     Dosage: UNK, DURATION: 84 DAYS
     Dates: start: 20221115, end: 20230206

REACTIONS (5)
  - Bacterial diarrhoea [Recovered/Resolved with Sequelae]
  - Haemorrhage intracranial [Recovered/Resolved with Sequelae]
  - Respiratory tract infection viral [Recovered/Resolved]
  - Lower respiratory tract infection [Recovered/Resolved]
  - Peripheral swelling [Recovered/Resolved]

NARRATIVE: CASE EVENT DATE: 20230207
